FAERS Safety Report 16259465 (Version 2)
Quarter: 2019Q4

REPORT INFORMATION
  Report Type: Spontaneous
  Country: US (occurrence: US)
  Receive Date: 20190501
  Receipt Date: 20191217
  Transmission Date: 20200122
  Serious: Yes (Hospitalization, Other)
  Sender: FDA-Public Use
  Company Number: US-ASTRAZENECA-2019SE10706

PATIENT
  Age: 17846 Day
  Sex: Female
  Weight: 69.9 kg

DRUGS (33)
  1. CYMBALTA [Concomitant]
     Active Substance: DULOXETINE HYDROCHLORIDE
     Dates: start: 20130924
  2. ULTRAM [Concomitant]
     Active Substance: TRAMADOL HYDROCHLORIDE
     Dates: start: 20140224
  3. KEPPRA [Concomitant]
     Active Substance: LEVETIRACETAM
     Route: 048
     Dates: start: 20140814
  4. ROBAXIN [Concomitant]
     Active Substance: METHOCARBAMOL
     Dates: start: 20101204
  5. NEXIUM [Suspect]
     Active Substance: ESOMEPRAZOLE MAGNESIUM
     Dosage: 20 MG
     Route: 048
     Dates: start: 20160411
  6. NEXIUM [Suspect]
     Active Substance: ESOMEPRAZOLE MAGNESIUM
     Route: 048
     Dates: start: 20150302
  7. SIMVASTATIN. [Concomitant]
     Active Substance: SIMVASTATIN
     Dates: start: 20161024
  8. DEPAKOTE [Concomitant]
     Active Substance: DIVALPROEX SODIUM
     Dates: start: 20160511
  9. MELATONIN [Concomitant]
     Active Substance: MELATONIN
     Dates: start: 20160804
  10. CEREBYX [Concomitant]
     Active Substance: FOSPHENYTOIN SODIUM
     Dates: start: 20160807
  11. METFORMIN [Concomitant]
     Active Substance: METFORMIN HYDROCHLORIDE
     Dates: start: 20160803
  12. IMITREX [Concomitant]
     Active Substance: SUMATRIPTAN SUCCINATE
     Dates: start: 20160329
  13. ONDANSETRON [Concomitant]
     Active Substance: ONDANSETRON
     Dates: start: 20160804
  14. ZOFRAN [Concomitant]
     Active Substance: ONDANSETRON HYDROCHLORIDE
     Dates: start: 20140224
  15. TOPAMAX [Concomitant]
     Active Substance: TOPIRAMATE
     Dates: start: 20161024
  16. OMEPRAZOLE. [Concomitant]
     Active Substance: OMEPRAZOLE
     Dosage: 40 MG
     Route: 048
     Dates: start: 20161027
  17. KEPPRA [Concomitant]
     Active Substance: LEVETIRACETAM
     Dosage: 40 MG
     Route: 048
     Dates: start: 20161027
  18. PREDNISONE. [Concomitant]
     Active Substance: PREDNISONE
     Dates: start: 20110525
  19. MAGNESIUM OXIDE. [Concomitant]
     Active Substance: MAGNESIUM OXIDE
     Dates: start: 20160803
  20. PROCTOSOL [Concomitant]
     Dates: start: 20160807
  21. NEXIUM [Suspect]
     Active Substance: ESOMEPRAZOLE MAGNESIUM
     Dosage: 20 MG
     Route: 048
     Dates: start: 20150113
  22. FLEXERIL [Concomitant]
     Active Substance: CYCLOBENZAPRINE HYDROCHLORIDE
     Dates: start: 20110525
  23. MOTRIN [Concomitant]
     Active Substance: IBUPROFEN
     Dates: start: 20100929
  24. TYLENOL [Concomitant]
     Active Substance: ACETAMINOPHEN
     Dates: start: 20160807
  25. KLOR-CON [Concomitant]
     Active Substance: POTASSIUM CHLORIDE
     Dates: start: 20160807
  26. NEURONTIN [Concomitant]
     Active Substance: GABAPENTIN
     Dates: start: 20160803
  27. IMODIUM [Concomitant]
     Active Substance: LOPERAMIDE HYDROCHLORIDE
     Dates: start: 20160807
  28. NEXIUM [Suspect]
     Active Substance: ESOMEPRAZOLE MAGNESIUM
     Route: 048
  29. HYDROCODONE BITARTRATE AND ACETAMINOPHEN [Concomitant]
     Active Substance: ACETAMINOPHEN\HYDROCODONE BITARTRATE
     Dates: start: 20140814
  30. NEXIUM [Suspect]
     Active Substance: ESOMEPRAZOLE MAGNESIUM
     Route: 048
     Dates: start: 20160805
  31. LOPERAMIDE [Concomitant]
     Active Substance: LOPERAMIDE
     Dates: start: 20160806
  32. DILAUDID [Concomitant]
     Active Substance: HYDROMORPHONE HYDROCHLORIDE
     Dates: start: 20150302
  33. LYRICA [Concomitant]
     Active Substance: PREGABALIN

REACTIONS (3)
  - Renal failure [Unknown]
  - Acute kidney injury [Unknown]
  - Rebound acid hypersecretion [Unknown]

NARRATIVE: CASE EVENT DATE: 20160803
